FAERS Safety Report 8058207-0 (Version None)
Quarter: 2012Q1

REPORT INFORMATION
  Report Type: 
  Country: None (occurrence: None)
  Receive Date: 20120120
  Receipt Date: 20120110
  Transmission Date: 20120608
  Serious: Yes (Hospitalization)
  Sender: FDA-Public Use
  Company Number: US-JNJFOC-20100907573

PATIENT
  Age: 26 Year
  Sex: Female
  Weight: 52.7 kg

DRUGS (2)
  1. ACETAMINOPHEN [Suspect]
     Indication: DYSMENORRHOEA
     Route: 065
  2. ACETAMINOPHEN [Suspect]
     Route: 065

REACTIONS (6)
  - EPIGASTRIC DISCOMFORT [None]
  - ACCIDENTAL OVERDOSE [None]
  - VOMITING [None]
  - PROTHROMBIN TIME PROLONGED [None]
  - ALANINE AMINOTRANSFERASE INCREASED [None]
  - NAUSEA [None]
